FAERS Safety Report 7130892-7 (Version None)
Quarter: 2010Q4

REPORT INFORMATION
  Report Type: 
  Country: None (occurrence: None)
  Receive Date: 20101201
  Receipt Date: 20101124
  Transmission Date: 20110411
  Serious: Yes (Other)
  Sender: FDA-Public Use
  Company Number: US-PERRIGO-10US015072

PATIENT
  Sex: Male
  Weight: 97.506 kg

DRUGS (1)
  1. TUSSIN DM LIQ 359 [Suspect]
     Indication: COUGH
     Dosage: 10 ML, TWICE, 4 HRS APART
     Route: 048
     Dates: start: 20101119, end: 20101119

REACTIONS (2)
  - HEART RATE INCREASED [None]
  - PALPITATIONS [None]
